FAERS Safety Report 13535576 (Version 1)
Quarter: 2017Q2

REPORT INFORMATION
  Report Type: Spontaneous
  Country: US (occurrence: US)
  Receive Date: 20170511
  Receipt Date: 20170511
  Transmission Date: 20170830
  Serious: Yes (Other)
  Sender: FDA-Public Use
  Company Number: US-009507513-1705USA004538

PATIENT
  Sex: Female

DRUGS (1)
  1. ASMANEX HFA [Suspect]
     Active Substance: MOMETASONE FUROATE
     Dosage: UNK
     Dates: start: 201609

REACTIONS (5)
  - Hypersensitivity [Unknown]
  - Rhinorrhoea [Unknown]
  - Hip surgery [Unknown]
  - Back pain [Unknown]
  - Nasal congestion [Unknown]
